FAERS Safety Report 7162201-1 (Version None)
Quarter: 2010Q4

REPORT INFORMATION
  Report Type: 
  Country: None (occurrence: None)
  Receive Date: 20101215
  Receipt Date: 20090911
  Transmission Date: 20110411
  Serious: Yes (Hospitalization)
  Sender: FDA-Public Use
  Company Number: FR-PFIZER INC-2008095805

PATIENT
  Age: 81 Year

DRUGS (9)
  1. LYRICA [Interacting]
     Indication: NEURALGIA
     Route: 048
     Dates: start: 20070101
  2. TRAMADOL HCL [Suspect]
     Indication: NEURALGIA
  3. DICODIN [Interacting]
     Indication: NEURALGIA
     Route: 048
     Dates: start: 20080201
  4. DAFALGAN [Concomitant]
     Dosage: UNK
  5. KLIPAL [Concomitant]
     Dates: start: 20070101, end: 20080201
  6. CORTANCYL [Concomitant]
  7. CARDENSIEL [Concomitant]
  8. AERIUS [Concomitant]
  9. LANTUS [Concomitant]

REACTIONS (6)
  - DRUG INTERACTION [None]
  - DYSPNOEA [None]
  - LUNG DISORDER [None]
  - LUNG INFECTION [None]
  - MYOCLONUS [None]
  - SOMNOLENCE [None]
